FAERS Safety Report 25249889 (Version 1)
Quarter: 2025Q2

REPORT INFORMATION
  Report Type: Spontaneous
  Country: US (occurrence: US)
  Receive Date: 20250429
  Receipt Date: 20250429
  Transmission Date: 20250716
  Serious: No
  Sender: BAXTER
  Company Number: US-BAXTER-2025BAX014650

PATIENT
  Sex: Female

DRUGS (1)
  1. TRANSDERM SCOP [Suspect]
     Active Substance: SCOPOLAMINE
     Indication: Inner ear operation
     Route: 065

REACTIONS (16)
  - Drug withdrawal syndrome [Unknown]
  - Gait inability [Unknown]
  - Weaning failure [Unknown]
  - Adverse event [Unknown]
  - Wrong technique in product usage process [Unknown]
  - Product use issue [Unknown]
  - Product substitution issue [Unknown]
  - Therapeutic response changed [Unknown]
  - Product availability issue [Unknown]
  - Palpitations [Unknown]
  - Hyperhidrosis [Unknown]
  - Nausea [Unknown]
  - Vomiting [Unknown]
  - Headache [Unknown]
  - Hypertension [Unknown]
  - Hypotension [Unknown]
